FAERS Safety Report 4458119-5 (Version None)
Quarter: 2004Q3

REPORT INFORMATION
  Report Type: 
  Country: None (occurrence: None)
  Receive Date: 20040924
  Receipt Date: 20040804
  Transmission Date: 20050211
  Serious: Yes (Hospitalization)
  Sender: FDA-Public Use
  Company Number: US-GLAXOSMITHKLINE-A0524184A

PATIENT
  Age: 61 Year
  Sex: Female
  Weight: 85.9 kg

DRUGS (11)
  1. TOPOTECAN [Suspect]
     Dosage: 1.3MG WEEKLY
     Route: 042
     Dates: start: 20040726, end: 20040816
  2. CISPLATIN [Suspect]
     Dosage: 70MG WEEKLY
     Route: 042
     Dates: start: 20040726, end: 20040816
  3. MIRALAX [Concomitant]
  4. PROTONIX [Concomitant]
  5. PEPCID [Concomitant]
  6. LOPRESSOR [Concomitant]
  7. COMPAZINE [Concomitant]
  8. POTASSIUM [Concomitant]
  9. BEXTRA [Concomitant]
  10. LEXAPRO [Concomitant]
  11. RADIOTHERAPY [Concomitant]
     Dosage: 180GY PER DAY

REACTIONS (12)
  - ANAEMIA [None]
  - ANOREXIA [None]
  - CONVULSION [None]
  - DEEP VEIN THROMBOSIS [None]
  - DIARRHOEA [None]
  - NAUSEA [None]
  - NEUTROPENIA [None]
  - OEDEMA PERIPHERAL [None]
  - PAIN [None]
  - RENAL FAILURE ACUTE [None]
  - THROMBOCYTOPENIA [None]
  - VOMITING [None]
